FAERS Safety Report 7138326-3 (Version None)
Quarter: 2010Q4

REPORT INFORMATION
  Report Type: 
  Country: None (occurrence: None)
  Receive Date: 20101118
  Receipt Date: 20101103
  Transmission Date: 20110411
  Serious: Yes (Hospitalization)
  Sender: FDA-Public Use
  Company Number: UTC-001929

PATIENT
  Age: 63 Year
  Sex: Male
  Weight: 102 kg

DRUGS (1)
  1. TYVASO [Suspect]
     Indication: PULMONARY ARTERIAL HYPERTENSION
     Dosage: (48 MCG), INHALATION
     Route: 055
     Dates: start: 20100525

REACTIONS (3)
  - DEHYDRATION [None]
  - HEADACHE [None]
  - SYNCOPE [None]
